FAERS Safety Report 11485574 (Version 1)
Quarter: 2015Q3

REPORT INFORMATION
  Report Type: Spontaneous
  Country: US (occurrence: None)
  Receive Date: 20150909
  Receipt Date: 20150909
  Transmission Date: 20151125
  Serious: No
  Sender: FDA-Public Use
  Company Number: ADR-2015-01310

PATIENT
  Age: 55 Year
  Sex: Male

DRUGS (2)
  1. COMPOUNDED BACLOFEN INTRATHECAL 2050 MCG/ML [Suspect]
     Active Substance: BACLOFEN
     Indication: PAIN
     Dosage: 951.1 MCG/DAY
  2. FENTANYL INTRATHECAL 90 MCG/ML [Suspect]
     Active Substance: FENTANYL
     Dosage: 951.1 MCG/DAY

REACTIONS (1)
  - Hypotension [None]
